FAERS Safety Report 6431635-2 (Version None)
Quarter: 2009Q4

REPORT INFORMATION
  Report Type: 
  Country: None (occurrence: None)
  Receive Date: 20091103
  Receipt Date: 20091019
  Transmission Date: 20100525
  Serious: No
  Sender: FDA-Public Use
  Company Number: 003047

PATIENT
  Age: 70 Year
  Sex: Male
  Weight: 62 kg

DRUGS (6)
  1. PLETAL [Suspect]
     Indication: CEREBRAL INFARCTION
     Dosage: 81 MG, QD, ORAL
     Route: 048
     Dates: start: 20050428, end: 20080710
  2. PLETAL [Suspect]
     Indication: CEREBRAL INFARCTION
     Dosage: 81 MG, QD, ORAL
     Route: 048
     Dates: start: 20080714
  3. SELBEX (TEPRENONE) CAPSULE [Concomitant]
  4. URINORM (BENZBROMARONE) TABLET [Concomitant]
  5. URALYT-U (POTASSIUM CITRATE, SODIUM CITRATE) POWDER [Concomitant]
  6. OLMETEC (OLMESARTAN MEDOXOMIL) TABLET [Concomitant]

REACTIONS (6)
  - DUODENAL ULCER [None]
  - GASTRIC ULCER [None]
  - GASTRITIS [None]
  - HELICOBACTER TEST POSITIVE [None]
  - HYPOCHROMIC ANAEMIA [None]
  - PEPTIC ULCER [None]
